FAERS Safety Report 24254411 (Version 2)
Quarter: 2024Q3

REPORT INFORMATION
  Report Type: Spontaneous
  Country: US (occurrence: US)
  Receive Date: 20240827
  Receipt Date: 20240927
  Transmission Date: 20241017
  Serious: No
  Sender: PFIZER
  Company Number: US-PFIZER INC-2018229461

PATIENT
  Age: 12 Year
  Sex: Female
  Weight: 131.09 kg

DRUGS (4)
  1. GENOTROPIN [Suspect]
     Active Substance: SOMATROPIN
     Indication: Prader-Willi syndrome
     Dosage: 2.7 MG, DAILY (2.7MG DAILY INTO THE SKIN)
     Dates: start: 20120215
  2. GENOTROPIN [Suspect]
     Active Substance: SOMATROPIN
     Dosage: 4MG INJECTION ONCE A DAY
     Dates: start: 2014
  3. LISINOPRIL [Concomitant]
     Active Substance: LISINOPRIL
     Indication: Cardiac disorder
     Dosage: 10MG TABLET ONCE A DAY BY MOUTH
     Route: 048
  4. VICTOZA [Concomitant]
     Active Substance: LIRAGLUTIDE
     Indication: Weight decreased
     Dosage: 0.6MG/1.2MG /1.8MG DAILY FOR A WEEK, THEN BACK TO 0.6MG DAILY FOR A WEEK

REACTIONS (3)
  - Product prescribing error [Unknown]
  - Device issue [Unknown]
  - Drug dose omission by device [Unknown]
